FAERS Safety Report 25149989 (Version 4)
Quarter: 2025Q2

REPORT INFORMATION
  Report Type: Spontaneous
  Country: JP (occurrence: JP)
  Receive Date: 20250402
  Receipt Date: 20250616
  Transmission Date: 20250717
  Serious: Yes (Other)
  Sender: PFIZER
  Company Number: JP-ONO-2025JP005495

PATIENT
  Age: 75 Year
  Sex: Female

DRUGS (3)
  1. BRAFTOVI [Suspect]
     Active Substance: ENCORAFENIB
     Indication: Thyroid cancer metastatic
     Route: 048
     Dates: start: 20250325, end: 20250325
  2. MEKTOVI [Suspect]
     Active Substance: BINIMETINIB
     Indication: Thyroid cancer metastatic
     Route: 048
     Dates: start: 20250325, end: 20250325
  3. LENVIMA [Concomitant]
     Active Substance: LENVATINIB
     Dosage: UNK, 2X/WEEK AT A REDUCED DOSE

REACTIONS (1)
  - Pneumonia [Recovering/Resolving]

NARRATIVE: CASE EVENT DATE: 20250326
